FAERS Safety Report 10159797 (Version 1)
Quarter: 2014Q2

REPORT INFORMATION
  Report Type: Spontaneous
  Country: GB (occurrence: None)
  Receive Date: 20140506
  Receipt Date: 20140506
  Transmission Date: 20141212
  Serious: Yes (Other)
  Sender: FDA-Public Use
  Company Number: FK201401555

PATIENT
  Age: 28 Year
  Sex: Female

DRUGS (15)
  1. AZITHROMYCIN (MANUFACTURER UNKNOWN) (AZITHROMYCIN) (AZITHROMYCIN) [Suspect]
     Indication: TUBERCULOSIS
     Dosage: UNKNOWN, INTERRUPTED FOR 3 DAYS AT WEEK 23
     Dates: start: 2011, end: 2011
  2. MEROPENEM [Suspect]
     Indication: TUBERCULOSIS
     Dosage: ADDED AT WEEK 5
     Dates: start: 2011, end: 2011
  3. PROTHIONAMIDE [Suspect]
     Indication: TUBERCULOSIS
     Dosage: INTERRUPTED FOR 3 DAYS AT WEEK 23
     Dates: start: 2011, end: 2011
  4. CYCLOSERINE [Suspect]
     Indication: TUBERCULOSIS
     Dosage: INTERRUPTED FOR 3 DAYS WEEK 23
     Dates: start: 2011, end: 2011
  5. PARA-AMINOSALICYLIC ACID [Suspect]
     Indication: TUBERCULOSIS
     Dosage: INITIATED AT WEEK 5
     Dates: start: 2011, end: 2011
  6. BEDAQUILINE [Suspect]
     Indication: TUBERCULOSIS
     Dosage: INITIATED WEEK 14
     Dates: start: 2011, end: 2011
  7. RIFAMPICIN (RIFAMPICIN) [Concomitant]
  8. ISONIAZID (ISONIAZID) [Concomitant]
  9. MOXIFLOXACIN (MOXIFLOXACIN) [Concomitant]
  10. AMIKACIN (AMIKACIN) [Concomitant]
  11. CO AMOXICLAV (AUGMENTIN) [Concomitant]
  12. PYRIDOXINE (PYRIDOXINE) [Concomitant]
  13. THYROXINE (LEVOTHYROXINE SODIUM) [Concomitant]
  14. CORTICOSTEROIDS (CORTICOSTEROIDS) [Concomitant]
  15. PYRAZINAMIDE (PYRAZINAMIDE) [Suspect]
     Indication: TUBERCULOSIS
     Dates: start: 2011, end: 2011

REACTIONS (6)
  - Neuropathy peripheral [None]
  - Secondary hypothyroidism [None]
  - Nausea [None]
  - Vertigo [None]
  - Tinnitus [None]
  - Drug resistance [None]
